FAERS Safety Report 5167173-7 (Version None)
Quarter: 2006Q4

REPORT INFORMATION
  Report Type: 
  Country: None (occurrence: None)
  Receive Date: 20061130
  Receipt Date: 20061124
  Transmission Date: 20070319
  Serious: Yes (Other)
  Sender: FDA-Public Use
  Company Number: GBWYE425526NOV03

PATIENT
  Age: 33 Year
  Sex: Male

DRUGS (8)
  1. RAPAMUNE [Suspect]
     Indication: IMMUNOSUPPRESSANT DRUG THERAPY
     Dosage: 3 MG 1X PER 1 DAY
     Route: 048
     Dates: start: 20021107, end: 20031110
  2. TRIMETHOPRIM [Concomitant]
  3. MYCOPHENOLATE MOFETIL [Concomitant]
  4. ATORVASTATIN [Concomitant]
  5. IRBESARTAN [Concomitant]
  6. ATENOLOL [Concomitant]
  7. PREDNISOLONE [Concomitant]
  8. NEORAL [Concomitant]

REACTIONS (2)
  - FOCAL GLOMERULOSCLEROSIS [None]
  - HAEMOGLOBIN DECREASED [None]
